FAERS Safety Report 24252688 (Version 2)
Quarter: 2024Q3

REPORT INFORMATION
  Report Type: Spontaneous
  Country: FR (occurrence: FR)
  Receive Date: 20240827
  Receipt Date: 20240830
  Transmission Date: 20241016
  Serious: Yes (Death, Other)
  Sender: SANOFI AVENTIS
  Company Number: FR-ROCHE-3515673

PATIENT
  Age: 64 Year
  Sex: Male

DRUGS (11)
  1. OXALIPLATIN [Suspect]
     Active Substance: OXALIPLATIN
     Indication: Lymphoma
     Dosage: UNK
  2. PREDNISOLONE [Suspect]
     Active Substance: PREDNISOLONE
     Indication: Lymphoma
     Dosage: UNK
  3. ETOPOSIDE [Suspect]
     Active Substance: ETOPOSIDE
     Indication: Lymphoma
     Dosage: UNK
  4. CYCLOPHOSPHAMIDE [Suspect]
     Active Substance: CYCLOPHOSPHAMIDE
     Indication: Lymphoma
     Dosage: UNK
  5. IFOSFAMIDE [Suspect]
     Active Substance: IFOSFAMIDE
     Indication: Lymphoma
     Dosage: UNK
  6. DOXORUBICIN [Suspect]
     Active Substance: DOXORUBICIN
     Indication: Lymphoma
     Dosage: UNK
  7. TACROLIMUS [Suspect]
     Active Substance: TACROLIMUS
     Indication: Lymphoma
     Dosage: UNK
  8. VINCRISTINE [Suspect]
     Active Substance: VINCRISTINE
     Indication: Lymphoma
     Dosage: UNK
  9. GEMCITABINE [Suspect]
     Active Substance: GEMCITABINE
     Indication: Lymphoma
     Dosage: UNK
  10. RITUXIMAB [Suspect]
     Active Substance: RITUXIMAB
     Indication: Lymphoma
     Dosage: 375 MG/M2, QOW
     Route: 041
  11. EVEROLIMUS [Suspect]
     Active Substance: EVEROLIMUS
     Indication: Lymphoma
     Dosage: UNK

REACTIONS (4)
  - Norovirus infection [Fatal]
  - Diarrhoea [Fatal]
  - Bacterial infection [Fatal]
  - Parasitic gastroenteritis [Recovered/Resolved]
